FAERS Safety Report 17086441 (Version 1)
Quarter: 2019Q4

REPORT INFORMATION
  Report Type: Spontaneous
  Country: US (occurrence: US)
  Receive Date: 20191127
  Receipt Date: 20191127
  Transmission Date: 20200122
  Serious: No
  Sender: FDA-Public Use
  Company Number: None

PATIENT
  Age: 17 Year
  Sex: Male

DRUGS (1)
  1. QBREXZA [Suspect]
     Active Substance: GLYCOPYRRONIUM TOSYLATE
     Indication: HYPERHIDROSIS
     Route: 061
     Dates: start: 20190910, end: 20191119

REACTIONS (4)
  - Dysphonia [None]
  - Dry mouth [None]
  - Dry skin [None]
  - Dysuria [None]

NARRATIVE: CASE EVENT DATE: 20191119
